FAERS Safety Report 25783218 (Version 2)
Quarter: 2025Q4

REPORT INFORMATION
  Report Type: Report from Study
  Country: US (occurrence: US)
  Receive Date: 20250910
  Receipt Date: 20251121
  Transmission Date: 20260117
  Serious: No
  Sender: SANDOZ
  Company Number: US-SANDOZ-SDZ2025US063955

PATIENT
  Age: 43 Year
  Sex: Male

DRUGS (2)
  1. HYRIMOZ [Suspect]
     Active Substance: ADALIMUMAB-ADAZ
     Indication: Ankylosing spondylitis
     Dosage: 40 MG, Q2W
     Route: 058
  2. HYRIMOZ [Suspect]
     Active Substance: ADALIMUMAB-ADAZ
     Dosage: 40 MG, Q2W
     Route: 058
     Dates: start: 20251014

REACTIONS (5)
  - Feeling abnormal [Unknown]
  - Respiratory disorder [Unknown]
  - Malaise [Unknown]
  - Dyspnoea [Unknown]
  - Sinusitis [Unknown]

NARRATIVE: CASE EVENT DATE: 20250801
